FAERS Safety Report 18263188 (Version 1)
Quarter: 2020Q3

REPORT INFORMATION
  Report Type: Spontaneous
  Country: NL (occurrence: NL)
  Receive Date: 20200914
  Receipt Date: 20200914
  Transmission Date: 20201103
  Serious: Yes (Other)
  Sender: FDA-Public Use
  Company Number: NL-ALVOGEN-2020-ALVOGEN-114262

PATIENT
  Sex: Male

DRUGS (4)
  1. TESTOSTERONE ENANTHATE. [Suspect]
     Active Substance: TESTOSTERONE ENANTHATE
     Indication: MUSCLE BUILDING THERAPY
     Dosage: INJECTED 250 MG
  2. EXEMESTANE. [Suspect]
     Active Substance: EXEMESTANE
     Indication: MUSCLE BUILDING THERAPY
  3. TADALAFIL. [Suspect]
     Active Substance: TADALAFIL
     Indication: MUSCLE BUILDING THERAPY
  4. MESTEROLONE [Suspect]
     Active Substance: MESTEROLONE
     Indication: MUSCLE BUILDING THERAPY

REACTIONS (3)
  - Cholestatic pruritus [Recovered/Resolved]
  - Acute kidney injury [Recovered/Resolved]
  - Drug-induced liver injury [Recovered/Resolved]
